FAERS Safety Report 9275591 (Version 1)
Quarter: 2013Q2

REPORT INFORMATION
  Report Type: Spontaneous
  Country: US (occurrence: US)
  Receive Date: 20130507
  Receipt Date: 20130507
  Transmission Date: 20140414
  Serious: Yes (Hospitalization, Other)
  Sender: FDA-Public Use
  Company Number: US-SANOFI-AVENTIS-2013SA044733

PATIENT
  Age: 83 Year
  Sex: Female

DRUGS (2)
  1. PLAVIX [Suspect]
     Indication: STENT PLACEMENT
     Dosage: DOSE:75 UNIT(S)
     Route: 048
  2. HYDROCHLOROTHIAZIDE [Concomitant]

REACTIONS (14)
  - Asthma [Unknown]
  - Dyspnoea [Unknown]
  - Bronchitis chronic [Unknown]
  - Eye disorder [Unknown]
  - Vision blurred [Unknown]
  - Thrombosis [Unknown]
  - Weight decreased [Unknown]
  - Abdominal discomfort [Unknown]
  - Nausea [Unknown]
  - Hypertension [Recovered/Resolved]
  - Local swelling [Unknown]
  - Abdominal distension [Unknown]
  - Back pain [Unknown]
  - Neck pain [Unknown]
